FAERS Safety Report 14208190 (Version 1)
Quarter: 2017Q4

REPORT INFORMATION
  Report Type: Spontaneous
  Country: US (occurrence: US)
  Receive Date: 20171120
  Receipt Date: 20171120
  Transmission Date: 20180321
  Serious: No
  Sender: FDA-Public Use
  Company Number: None

PATIENT
  Age: 55 Year
  Sex: Female
  Weight: 63 kg

DRUGS (2)
  1. HUMALOG [Suspect]
     Active Substance: INSULIN LISPRO
     Indication: DIABETES MELLITUS
     Route: 058
     Dates: start: 20150630, end: 20171120
  2. ANIMAS VIBE INSULIN PUMP [Concomitant]

REACTIONS (5)
  - Alopecia [None]
  - Poisoning [None]
  - Feeling abnormal [None]
  - Skin atrophy [None]
  - Fatigue [None]

NARRATIVE: CASE EVENT DATE: 20171120
